FAERS Safety Report 9242402 (Version 1)
Quarter: 2013Q2

REPORT INFORMATION
  Report Type: Spontaneous
  Country: US (occurrence: US)
  Receive Date: 20130419
  Receipt Date: 20130419
  Transmission Date: 20140414
  Serious: No
  Sender: FDA-Public Use
  Company Number: US-ASTRAZENECA-2013SE22174

PATIENT
  Age: 53 Year
  Sex: Female
  Weight: 46.7 kg

DRUGS (5)
  1. ATENOLOL [Suspect]
     Route: 048
  2. SEROQUEL [Suspect]
     Indication: SLEEP DISORDER
     Dosage: AT NIGHT
     Route: 048
     Dates: start: 201209, end: 201210
  3. SEROQUEL [Suspect]
     Indication: SLEEP DISORDER
     Route: 048
     Dates: start: 201303, end: 201303
  4. SEROQUEL [Suspect]
     Indication: SLEEP DISORDER
     Route: 048
     Dates: start: 201303
  5. LUNESTA [Concomitant]
     Indication: SLEEP DISORDER

REACTIONS (17)
  - Post-traumatic stress disorder [Unknown]
  - Depressed mood [Unknown]
  - Cardiac valve disease [Unknown]
  - Increased appetite [Unknown]
  - Anxiety [Unknown]
  - Panic attack [Unknown]
  - Eating disorder [Unknown]
  - Thinking abnormal [Unknown]
  - Hallucination, visual [Unknown]
  - Insomnia [Unknown]
  - Hallucination, auditory [Unknown]
  - Feeling abnormal [Unknown]
  - Nightmare [Unknown]
  - Fatigue [Unknown]
  - Orthostatic hypotension [Unknown]
  - Hypotension [Unknown]
  - Off label use [Unknown]
